FAERS Safety Report 20390015 (Version 1)
Quarter: 2022Q1

REPORT INFORMATION
  Report Type: Spontaneous
  Country: US (occurrence: US)
  Receive Date: 20220128
  Receipt Date: 20220128
  Transmission Date: 20220423
  Serious: No
  Sender: FDA-Public Use
  Company Number: US-ALLERGAN-2124952US

PATIENT
  Sex: Female

DRUGS (7)
  1. BOTOX COSMETIC [Suspect]
     Active Substance: ONABOTULINUMTOXINA
     Indication: Skin wrinkling
     Dosage: UNK, SINGLE
     Dates: start: 20210521, end: 20210521
  2. BOTOX COSMETIC [Suspect]
     Active Substance: ONABOTULINUMTOXINA
     Indication: Skin wrinkling
     Dosage: UNK, SINGLE
     Dates: start: 20210521, end: 20210521
  3. BOTOX COSMETIC [Suspect]
     Active Substance: ONABOTULINUMTOXINA
     Indication: Skin wrinkling
     Dosage: UNK, SINGLE
     Dates: start: 20210521, end: 20210521
  4. BOTOX COSMETIC [Suspect]
     Active Substance: ONABOTULINUMTOXINA
     Indication: Skin wrinkling
     Dosage: UNK, SINGLE
     Dates: start: 20210521, end: 20210521
  5. VITAMINS NOS [Concomitant]
     Active Substance: VITAMINS
  6. ESTROGENS [Concomitant]
     Active Substance: ESTROGENS
  7. WIXELA INHUB [Concomitant]
     Active Substance: FLUTICASONE PROPIONATE\SALMETEROL XINAFOATE
     Indication: Asthma

REACTIONS (5)
  - Facial spasm [Not Recovered/Not Resolved]
  - Off label use [Unknown]
  - Brow ptosis [Recovered/Resolved]
  - Muscle contractions involuntary [Not Recovered/Not Resolved]
  - Headache [Recovered/Resolved]
